FAERS Safety Report 13433650 (Version 1)
Quarter: 2017Q2

REPORT INFORMATION
  Report Type: Spontaneous
  Country: US (occurrence: US)
  Receive Date: 20170412
  Receipt Date: 20170412
  Transmission Date: 20170830
  Serious: No
  Sender: FDA-Public Use
  Company Number: US-THE RITEDOSE CORPORATION-2017RIT000058

PATIENT

DRUGS (1)
  1. LEVALBUTEROL. [Suspect]
     Active Substance: LEVALBUTEROL
     Indication: CHRONIC OBSTRUCTIVE PULMONARY DISEASE
     Dosage: 1 VIAL ONCE TO TWICE DAILY
     Route: 055

REACTIONS (3)
  - Fall [Unknown]
  - Upper limb fracture [Unknown]
  - Product packaging issue [Unknown]

NARRATIVE: CASE EVENT DATE: 201702
